FAERS Safety Report 8156335-2 (Version None)
Quarter: 2012Q1

REPORT INFORMATION
  Report Type: 
  Country: None (occurrence: None)
  Receive Date: 20120222
  Receipt Date: 20111122
  Transmission Date: 20120608
  Serious: No
  Sender: FDA-Public Use
  Company Number: US-BRISTOL-MYERS SQUIBB COMPANY-16243735

PATIENT
  Age: 40 Year
  Sex: Female

DRUGS (3)
  1. XYLOCAINE [Concomitant]
     Dosage: 1 DF = 2.0 CC 1% XYLOCAINE
  2. KENALOG [Suspect]
     Indication: OEDEMA PERIPHERAL
  3. DEXAMETHASONE ACETATE [Concomitant]

REACTIONS (1)
  - INJECTION SITE ATROPHY [None]
